FAERS Safety Report 6076261-2 (Version None)
Quarter: 2009Q1

REPORT INFORMATION
  Report Type: 
  Country: None (occurrence: None)
  Receive Date: 20090210
  Receipt Date: 20090127
  Transmission Date: 20090719
  Serious: Yes (Other)
  Sender: FDA-Public Use
  Company Number: A-CH2009-23656

PATIENT
  Sex: Female

DRUGS (1)
  1. TRACLEER [Suspect]
     Indication: SKIN ULCER

REACTIONS (8)
  - ANAEMIA [None]
  - CARDIAC PACEMAKER INSERTION [None]
  - COLONOSCOPY [None]
  - DEPRESSION [None]
  - DRUG INEFFECTIVE [None]
  - EPISTAXIS [None]
  - MELAENA [None]
  - OPERATIVE HAEMORRHAGE [None]
